FAERS Safety Report 16068189 (Version 1)
Quarter: 2019Q1

REPORT INFORMATION
  Report Type: Spontaneous
  Country: HR (occurrence: HR)
  Receive Date: 20190313
  Receipt Date: 20190313
  Transmission Date: 20190418
  Serious: Yes (Other)
  Sender: FDA-Public Use
  Company Number: HR-PFIZER INC-2019106879

PATIENT
  Age: 70 Year
  Sex: Female
  Weight: 75 kg

DRUGS (3)
  1. MEDROL [Suspect]
     Active Substance: METHYLPREDNISOLONE
     Indication: RHEUMATIC DISORDER
     Dosage: 6 MG, 1X/DAY (4 MG; 1 X 1.5)
     Route: 048
     Dates: start: 20190201, end: 20190201
  2. NALGESIN S [NAPROXEN SODIUM] [Concomitant]
     Indication: PAIN
     Dosage: 1100 MG, 1X/DAY (550; 2 X1)
     Route: 048
     Dates: start: 20190201, end: 20190201
  3. EUTHYROX [Concomitant]
     Active Substance: LEVOTHYROXINE SODIUM
     Dosage: 25 UG, 1X/DAY
     Route: 048

REACTIONS (1)
  - Genital haemorrhage [Recovered/Resolved]

NARRATIVE: CASE EVENT DATE: 20190201
